FAERS Safety Report 7246712-6 (Version None)
Quarter: 2011Q1

REPORT INFORMATION
  Report Type: 
  Country: None (occurrence: None)
  Receive Date: 20110127
  Receipt Date: 20110117
  Transmission Date: 20110831
  Serious: Yes (Hospitalization, Other)
  Sender: FDA-Public Use
  Company Number: FR-AMGEN-FRASP2011004133

PATIENT
  Age: 54 Year
  Sex: Male
  Weight: 80 kg

DRUGS (5)
  1. ENBREL [Suspect]
     Indication: RHEUMATOID ARTHRITIS
     Dosage: 50 MG, WEEKLY
     Route: 058
     Dates: start: 20040101
  2. CORTANCYL [Concomitant]
     Dosage: UNK
  3. NEXIUM [Concomitant]
     Dosage: UNK
  4. APROVEL [Concomitant]
     Dosage: UNK
  5. EFFERALGAN CODEINE [Concomitant]
     Dosage: UNK

REACTIONS (3)
  - RHEUMATOID ARTHRITIS [None]
  - HYPOAESTHESIA [None]
  - PARAESTHESIA [None]
